FAERS Safety Report 4622442-1 (Version None)
Quarter: 2005Q1

REPORT INFORMATION
  Report Type: 
  Country: None (occurrence: None)
  Receive Date: 20050317
  Receipt Date: 20041229
  Transmission Date: 20050727
  Serious: Yes (Hospitalization)
  Sender: FDA-Public Use
  Company Number: PHEH2004US02935

PATIENT
  Age: 38 Year
  Sex: Male
  Weight: 103.4 kg

DRUGS (6)
  1. TRILEPTAL [Suspect]
     Indication: CONVULSION
     Dosage: 300 MG, BID, ORAL
     Route: 048
     Dates: start: 20030626, end: 20040131
  2. TRILEPTAL [Suspect]
     Indication: CONVULSION
     Dosage: 300 MG, BID, ORAL
     Route: 048
     Dates: start: 20040326
  3. MINOCYCLINE (MINOCYCLINE) [Suspect]
     Indication: ACNE
     Dosage: ORAL
     Route: 048
     Dates: start: 20021126, end: 20040131
  4. CELEXA [Suspect]
     Indication: DEPRESSION
     Dosage: ORAL
     Route: 048
     Dates: start: 20030811, end: 20040131
  5. PHENYTOIN [Suspect]
     Indication: DEPRESSION
     Dates: start: 20040131, end: 20040501
  6. MULTIVITAMINS (ASCORBIC ACID, ERGOCALCIFEROL, FOLIC ACID, NICOTINAMIDE [Concomitant]

REACTIONS (14)
  - ABDOMINAL PAIN UPPER [None]
  - AGGRESSION [None]
  - AGITATION [None]
  - ALANINE AMINOTRANSFERASE INCREASED [None]
  - BLOOD ALKALINE PHOSPHATASE INCREASED [None]
  - CELLULITIS [None]
  - DISTURBANCE IN ATTENTION [None]
  - DROOLING [None]
  - DYSARTHRIA [None]
  - FUNGAL INFECTION [None]
  - LETHARGY [None]
  - LIVER FUNCTION TEST ABNORMAL [None]
  - NAUSEA [None]
  - THERAPEUTIC RESPONSE UNEXPECTED [None]
